FAERS Safety Report 18759390 (Version 2)
Quarter: 2025Q2

REPORT INFORMATION
  Report Type: Report from Study
  Country: FR (occurrence: FR)
  Receive Date: 20210120
  Receipt Date: 20250630
  Transmission Date: 20250716
  Serious: Yes (Life-Threatening, Other)
  Sender: AUROBINDO
  Company Number: FR-MLMSERVICE-20210111-2674020-2

PATIENT
  Age: 66 Year
  Sex: Female

DRUGS (2)
  1. CARBOPLATIN [Suspect]
     Active Substance: CARBOPLATIN
     Indication: Ovarian cancer
     Route: 065
     Dates: start: 201508
  2. GEMCITABINE [Suspect]
     Active Substance: GEMCITABINE
     Indication: Ovarian cancer
     Route: 065
     Dates: start: 201508

REACTIONS (7)
  - Anaemia [Unknown]
  - Neutropenia [Unknown]
  - Toxicity to various agents [Unknown]
  - Drug-induced liver injury [Unknown]
  - Drug hypersensitivity [Recovered/Resolved]
  - Neuropathy peripheral [Unknown]
  - Escherichia infection [Recovered/Resolved]
